FAERS Safety Report 5106712-9 (Version None)
Quarter: 2006Q3

REPORT INFORMATION
  Report Type: 
  Country: None (occurrence: None)
  Receive Date: 20060913
  Receipt Date: 20060824
  Transmission Date: 20061208
  Serious: Yes (Hospitalization, Other)
  Sender: FDA-Public Use
  Company Number: BE200607004028

PATIENT
  Age: 69 Year
  Sex: Male
  Weight: 62 kg

DRUGS (18)
  1. ALIMTA [Suspect]
     Dosage: DAY ONE
     Dates: start: 20060519
  2. ALIMTA [Suspect]
     Dosage: DAY ONE
     Dates: start: 20060529
  3. ALIMTA [Suspect]
     Dosage: DAY ONE
     Dates: start: 20060710
  4. ALIMTA [Suspect]
     Dosage: DAY ONE
     Dates: start: 20060807
  5. OMEPRAZOLE [Concomitant]
  6. MEDROL ACETATE [Concomitant]
  7. FELDENE [Concomitant]
  8. FOLAVIT (FOLIC ACID) [Concomitant]
  9. AMITRIPTYLINE HCL [Concomitant]
  10. FENTANYL [Concomitant]
  11. MOVICOL (MACROGOL, POTASSIUM CHLORIDE, SODIUM BICARBONATE, SODIUM CHLO [Concomitant]
  12. AUGMENTIN '125' [Concomitant]
  13. AMLODIPINE BESYLATE [Concomitant]
  14. LITICAN (ALIZAPRIDE) [Concomitant]
  15. MORPHINE [Concomitant]
  16. TAZOCIN (PIPERACILLIN SODIUM, TAZOBACTAM SODIUM) [Concomitant]
  17. CYANOCOBALAMIN [Concomitant]
  18. VITRIMIX (AMINO ACIDS NOS, ELECTROLYTES NOS, GLUCOSE, GLYCEROL, LECITH [Concomitant]

REACTIONS (4)
  - DECUBITUS ULCER [None]
  - DEHYDRATION [None]
  - MUCOSAL INFLAMMATION [None]
  - NEUTROPENIA [None]
